FAERS Safety Report 11194732 (Version 3)
Quarter: 2017Q1

REPORT INFORMATION
  Report Type: Report from Study
  Country: US (occurrence: US)
  Receive Date: 20150617
  Receipt Date: 20170315
  Transmission Date: 20170428
  Serious: Yes (Hospitalization, Other)
  Sender: FDA-Public Use
  Company Number: US-AMGEN-USASL2015057582

PATIENT
  Age: 60 Year
  Sex: Female

DRUGS (3)
  1. ENBREL [Suspect]
     Active Substance: ETANERCEPT
     Indication: RHEUMATOID ARTHRITIS
     Dosage: 50 MG, ONCE WEEKLY
     Route: 058
     Dates: end: 20161005
  2. ENBREL [Suspect]
     Active Substance: ETANERCEPT
     Dosage: UNK
     Route: 058
  3. IMURAN [Concomitant]
     Active Substance: AZATHIOPRINE
     Dosage: 125 MG, ONCE DAILY

REACTIONS (27)
  - Rheumatoid arthritis [Unknown]
  - Vomiting [Recovered/Resolved]
  - Pulmonary mass [Unknown]
  - Chronic obstructive pulmonary disease [Unknown]
  - Pain [Recovered/Resolved]
  - Headache [Not Recovered/Not Resolved]
  - Dizziness [Not Recovered/Not Resolved]
  - Sinusitis [Recovered/Resolved]
  - Basal cell carcinoma [Unknown]
  - Rash [Recovered/Resolved]
  - Depressed mood [Recovered/Resolved]
  - Nausea [Not Recovered/Not Resolved]
  - Joint range of motion decreased [Unknown]
  - Pneumonia [Unknown]
  - Fatigue [Not Recovered/Not Resolved]
  - Emotional disorder [Recovered/Resolved]
  - Muscular weakness [Unknown]
  - Malaise [Not Recovered/Not Resolved]
  - Lung disorder [Unknown]
  - Hot flush [Not Recovered/Not Resolved]
  - Haemoptysis [Unknown]
  - Respiratory tract congestion [Recovered/Resolved]
  - Upper respiratory tract infection [Recovered/Resolved]
  - Injection site reaction [Unknown]
  - Influenza like illness [Recovered/Resolved]
  - Dysphonia [Not Recovered/Not Resolved]
  - Productive cough [Not Recovered/Not Resolved]

NARRATIVE: CASE EVENT DATE: 201408
